FAERS Safety Report 14665020 (Version 4)
Quarter: 2018Q3

REPORT INFORMATION
  Report Type: Spontaneous
  Country: US (occurrence: US)
  Receive Date: 20180321
  Receipt Date: 20180709
  Transmission Date: 20181010
  Serious: Yes (Life-Threatening, Hospitalization, Disabling, Other)
  Sender: FDA-Public Use
  Company Number: US-AMGEN-USASP2018035866

PATIENT
  Age: 77 Year
  Sex: Male
  Weight: 60.32 kg

DRUGS (2)
  1. VITAMIN D [Concomitant]
     Active Substance: CHOLECALCIFEROL
     Dosage: 5000 UNIT, Q3WK
  2. PROLIA [Suspect]
     Active Substance: DENOSUMAB
     Indication: OSTEOPOROSIS
     Dosage: 60 MG, Q6MO
     Route: 058
     Dates: start: 20170824, end: 20170824

REACTIONS (13)
  - Septic shock [Recovering/Resolving]
  - Spinal compression fracture [Recovering/Resolving]
  - Unresponsive to stimuli [Unknown]
  - Fall [Unknown]
  - Multiple organ dysfunction syndrome [Unknown]
  - Cerebrovascular accident [Unknown]
  - Femur fracture [Unknown]
  - Atrial fibrillation [Recovering/Resolving]
  - Cardiac arrest [Recovered/Resolved]
  - Humerus fracture [Unknown]
  - Upper limb fracture [Unknown]
  - Renal disorder [Recovering/Resolving]
  - Hypocalcaemia [Recovered/Resolved]

NARRATIVE: CASE EVENT DATE: 2017
